FAERS Safety Report 24841975 (Version 2)
Quarter: 2025Q1

REPORT INFORMATION
  Report Type: Report from Study
  Country: US (occurrence: US)
  Receive Date: 20250114
  Receipt Date: 20250126
  Transmission Date: 20250408
  Serious: Yes (Life-Threatening, Other)
  Sender: ABBVIE
  Company Number: US-ABBVIE-6081692

PATIENT
  Sex: Female

DRUGS (1)
  1. LUPRON [Suspect]
     Active Substance: LEUPROLIDE ACETATE
     Indication: Product used for unknown indication
     Route: 030

REACTIONS (5)
  - Toxicity to various agents [Not Recovered/Not Resolved]
  - Injury [Unknown]
  - Adverse drug reaction [Not Recovered/Not Resolved]
  - Poisoning [Unknown]
  - Alopecia [Not Recovered/Not Resolved]
